FAERS Safety Report 8510238-X (Version None)
Quarter: 2012Q3

REPORT INFORMATION
  Report Type: 
  Country: None (occurrence: None)
  Receive Date: 20120713
  Receipt Date: 20120706
  Transmission Date: 20120928
  Serious: Yes (Other)
  Sender: FDA-Public Use
  Company Number: US-MPIJNJ-2012-04780

PATIENT
  Sex: Male

DRUGS (1)
  1. VELCADE [Suspect]
     Indication: BRAIN NEOPLASM
     Dosage: UNK
     Route: 042
     Dates: start: 20120411, end: 20120706

REACTIONS (1)
  - LABORATORY TEST ABNORMAL [None]
